FAERS Safety Report 13024425 (Version 2)
Quarter: 2017Q1

REPORT INFORMATION
  Report Type: Spontaneous
  Country: US (occurrence: US)
  Receive Date: 20161213
  Receipt Date: 20170310
  Transmission Date: 20170428
  Serious: No
  Sender: FDA-Public Use
  Company Number: GXBR2016US003473

PATIENT
  Sex: Female
  Weight: 20.64 kg

DRUGS (2)
  1. HYDROCORTISONE. [Concomitant]
     Active Substance: HYDROCORTISONE
     Indication: ADRENAL INSUFFICIENCY
     Dosage: UNK DF, UNK
     Route: 048
     Dates: start: 201609
  2. OMNITROPE [Suspect]
     Active Substance: SOMATROPIN
     Indication: GROWTH HORMONE DEFICIENCY
     Dosage: 0.5 MG, QD
     Route: 058
     Dates: start: 20161101

REACTIONS (1)
  - Incorrect dose administered by device [Not Recovered/Not Resolved]
